FAERS Safety Report 14184661 (Version 2)
Quarter: 2017Q4

REPORT INFORMATION
  Report Type: Report from Study
  Country: AM (occurrence: AM)
  Receive Date: 20171113
  Receipt Date: 20171205
  Transmission Date: 20180321
  Serious: Yes (Death, Hospitalization, Other)
  Sender: FDA-Public Use
  Company Number: AM-GILEAD-2017-0303964

PATIENT
  Age: 55 Year
  Sex: Male

DRUGS (4)
  1. SOFOSBUVIR [Suspect]
     Active Substance: SOFOSBUVIR
     Indication: HEPATITIS C
     Dosage: 400 MG, UNK
     Route: 048
     Dates: start: 20170608, end: 201706
  2. DACLATASVIR. [Concomitant]
     Active Substance: DACLATASVIR
     Dosage: 60 MG, UNK
     Route: 048
     Dates: start: 20170713, end: 20170731
  3. SOFOSBUVIR [Suspect]
     Active Substance: SOFOSBUVIR
     Dosage: 400 MG, UNK
     Route: 048
     Dates: start: 20170713, end: 20170731
  4. DACLATASVIR. [Concomitant]
     Active Substance: DACLATASVIR
     Indication: HEPATITIS C
     Dosage: 60 MG, UNK
     Route: 048
     Dates: start: 20170608, end: 201706

REACTIONS (5)
  - Hepatic cirrhosis [Fatal]
  - Hepatorenal syndrome [Fatal]
  - Death [Fatal]
  - Hepatic encephalopathy [Fatal]
  - Ascites [Fatal]

NARRATIVE: CASE EVENT DATE: 201706
